FAERS Safety Report 6094488-0 (Version None)
Quarter: 2009Q1

REPORT INFORMATION
  Report Type: 
  Country: None (occurrence: None)
  Receive Date: 20090226
  Receipt Date: 20090211
  Transmission Date: 20090719
  Serious: Yes (Death)
  Sender: FDA-Public Use
  Company Number: TW-GENENTECH-274868

PATIENT
  Age: 50 Year
  Sex: Male

DRUGS (7)
  1. MABTHERA [Suspect]
     Indication: RHEUMATOID ARTHRITIS
     Dosage: 500 MG, Q2W
     Route: 042
     Dates: start: 20081009, end: 20081025
  2. DIPHENHYDRAMINE HCL [Concomitant]
     Indication: PREMEDICATION
  3. PERILLA FRUTESCENS [Concomitant]
     Indication: PREMEDICATION
  4. PARACETAMOL [Concomitant]
     Indication: PREMEDICATION
  5. HYDROCORTISONE [Concomitant]
     Indication: PREMEDICATION
  6. METHYLPREDNISONE (UNK INGREDIENTS) [Concomitant]
     Indication: DRUG USE FOR UNKNOWN INDICATION
  7. ANTIBIOTIC (UNK INGREDIENTS) [Concomitant]
     Indication: DRUG USE FOR UNKNOWN INDICATION

REACTIONS (1)
  - LUNG INFECTION [None]
